FAERS Safety Report 20626204 (Version 1)
Quarter: 2022Q1

REPORT INFORMATION
  Report Type: Spontaneous
  Country: US (occurrence: US)
  Receive Date: 20220323
  Receipt Date: 20220323
  Transmission Date: 20220424
  Serious: Yes (Other)
  Sender: FDA-Public Use
  Company Number: US-JNJFOC-20220334407

PATIENT
  Age: 15 Year
  Sex: Male

DRUGS (1)
  1. TYLENOL EXTRA STRENGTH [Suspect]
     Active Substance: ACETAMINOPHEN
     Indication: Product used for unknown indication
     Dosage: PATIENT TOOK TYLENOL 500 MG 15 TABLETS.
     Route: 048

REACTIONS (2)
  - Suspected suicide attempt [Unknown]
  - Overdose [Unknown]
